FAERS Safety Report 11372093 (Version 1)
Quarter: 2015Q3

REPORT INFORMATION
  Report Type: Report from Study
  Country: BR (occurrence: BR)
  Receive Date: 20150812
  Receipt Date: 20150812
  Transmission Date: 20151125
  Serious: Yes (Death, Other)
  Sender: FDA-Public Use
  Company Number: BR-BRISTOL-MYERS SQUIBB COMPANY-BMS-2015-019136

PATIENT
  Age: 79 Year
  Sex: Male
  Weight: 48 kg

DRUGS (3)
  1. CETUXIMAB [Suspect]
     Active Substance: CETUXIMAB
     Indication: COLORECTAL CANCER
     Dosage: 20 ML, QWK
     Route: 065
     Dates: start: 20150115
  2. PARACETAMOL [Concomitant]
     Active Substance: ACETAMINOPHEN
     Indication: PAIN
     Dosage: UNK, Q6H
     Route: 065
  3. AMITRIPTYLINE HYDROCHLORIDE. [Concomitant]
     Active Substance: AMITRIPTYLINE HYDROCHLORIDE
     Indication: DEPRESSION
     Dosage: 2 DF, QD
     Route: 065

REACTIONS (8)
  - Onychomadesis [Recovered/Resolved with Sequelae]
  - Malignant neoplasm progression [Fatal]
  - Dermatitis allergic [Recovered/Resolved]
  - Fatigue [Not Recovered/Not Resolved]
  - Nail disorder [Unknown]
  - Red blood cell count decreased [Unknown]
  - Hypoaesthesia [Unknown]
  - Gait disturbance [Unknown]

NARRATIVE: CASE EVENT DATE: 20150115
